FAERS Safety Report 15940130 (Version 3)
Quarter: 2019Q2

REPORT INFORMATION
  Report Type: Spontaneous
  Country: US (occurrence: US)
  Receive Date: 20190208
  Receipt Date: 20190516
  Transmission Date: 20190711
  Serious: No
  Sender: FDA-Public Use
  Company Number: US-GILEAD-2019-0389901

PATIENT
  Age: 65 Year
  Sex: Male

DRUGS (7)
  1. MULTIVITAMIN [VITAMINS NOS] [Concomitant]
  2. PRAVASTATIN SODIUM. [Concomitant]
     Active Substance: PRAVASTATIN SODIUM
  3. AMLODIPINE BESYLATE. [Concomitant]
     Active Substance: AMLODIPINE BESYLATE
  4. FISH OIL [Concomitant]
     Active Substance: FISH OIL
  5. POTASSIUM ACETATE. [Concomitant]
     Active Substance: POTASSIUM ACETATE
  6. TYLENOL [Concomitant]
     Active Substance: ACETAMINOPHEN
  7. EPCLUSA [Suspect]
     Active Substance: SOFOSBUVIR\VELPATASVIR
     Indication: CHRONIC HEPATITIS C
     Dosage: 1 DOSAGE FORM
     Route: 048
     Dates: start: 20190122, end: 201904

REACTIONS (2)
  - Pain [Recovering/Resolving]
  - Abdominal discomfort [Recovered/Resolved]
